FAERS Safety Report 26189781 (Version 1)
Quarter: 2025Q4

REPORT INFORMATION
  Report Type: Report from Study
  Country: US (occurrence: US)
  Receive Date: 20251223
  Receipt Date: 20251223
  Transmission Date: 20260118
  Serious: No
  Sender: JOHNSON AND JOHNSON
  Company Number: US-JNJFOC-20251211612

PATIENT

DRUGS (3)
  1. TALVEY [Suspect]
     Active Substance: TALQUETAMAB-TGVS
     Indication: Product used for unknown indication
  2. TALVEY [Suspect]
     Active Substance: TALQUETAMAB-TGVS
  3. TALVEY [Suspect]
     Active Substance: TALQUETAMAB-TGVS

REACTIONS (1)
  - Inappropriate schedule of product administration [Unknown]
